FAERS Safety Report 17480152 (Version 1)
Quarter: 2020Q1

REPORT INFORMATION
  Report Type: Spontaneous
  Country: US (occurrence: US)
  Receive Date: 20200228
  Receipt Date: 20200228
  Transmission Date: 20200409
  Serious: No
  Sender: FDA-Public Use
  Company Number: US-LEXICON PHARMACEUTICALS, INC-20-1606-00159

PATIENT
  Sex: Female

DRUGS (3)
  1. SANDOSTATIN [Concomitant]
     Active Substance: OCTREOTIDE ACETATE
  2. WATER PILL [Concomitant]
     Active Substance: UNSPECIFIED INGREDIENT
  3. XERMELO [Suspect]
     Active Substance: TELOTRISTAT ETHYL
     Indication: CARCINOID TUMOUR
     Dates: start: 20190724

REACTIONS (1)
  - Neck pain [Unknown]
